FAERS Safety Report 5423013-X (Version None)
Quarter: 2007Q3

REPORT INFORMATION
  Report Type: 
  Country: None (occurrence: None)
  Receive Date: 20070822
  Receipt Date: 20070810
  Transmission Date: 20080115
  Serious: Yes (Hospitalization, Other)
  Sender: FDA-Public Use
  Company Number: CA-PFIZER INC-2007059972

PATIENT
  Age: 50 Year
  Sex: Male

DRUGS (8)
  1. LYRICA [Suspect]
     Indication: MUSCULOSKELETAL PAIN
     Dosage: DAILY DOSE:75MG
     Route: 048
     Dates: start: 20070101, end: 20070101
  2. ELAVIL [Concomitant]
  3. NOVO-HYDROXYZIN [Concomitant]
  4. EFFEXOR [Concomitant]
  5. APO-ACETAMINOPHEN [Concomitant]
  6. CYCLOBENZAPRINE HCL [Concomitant]
  7. NAPROXEN [Concomitant]
  8. OMEPRAZOLE [Concomitant]

REACTIONS (7)
  - ABASIA [None]
  - FALL [None]
  - GAIT DISTURBANCE [None]
  - MUSCLE CONTRACTURE [None]
  - PARALYSIS [None]
  - SPINAL OPERATION [None]
  - TREMOR [None]
